FAERS Safety Report 6123986-6 (Version None)
Quarter: 2009Q1

REPORT INFORMATION
  Report Type: 
  Country: None (occurrence: None)
  Receive Date: 20090318
  Receipt Date: 20090318
  Transmission Date: 20090719
  Serious: No
  Sender: FDA-Public Use
  Company Number: None

PATIENT
  Sex: Female
  Weight: 94.09 kg

DRUGS (12)
  1. TOPAMAX [Suspect]
     Dosage: 200MG TABLET 200MG BID ORAL
     Route: 048
     Dates: start: 20071221, end: 20090318
  2. ATENOLOL [Concomitant]
  3. ATIVAN [Concomitant]
  4. CALCIUM 500 + D (CALCIUM CARBONATE/ELEM CA) [Concomitant]
  5. CELEXEA [Concomitant]
  6. CPAP [Concomitant]
  7. DETROL [Concomitant]
  8. GABAPENTIN [Concomitant]
  9. HYDROCHLOROTHIAZIDE [Concomitant]
  10. LISINOPRIL [Concomitant]
  11. PRILOSEC [Concomitant]
  12. ZONEGRAN [Concomitant]

REACTIONS (1)
  - FATIGUE [None]
